FAERS Safety Report 15344839 (Version 1)
Quarter: 2018Q3

REPORT INFORMATION
  Report Type: Spontaneous
  Country: ES (occurrence: ES)
  Receive Date: 20180903
  Receipt Date: 20180903
  Transmission Date: 20181010
  Serious: Yes (Hospitalization)
  Sender: FDA-Public Use
  Company Number: ES-TEVA-2018-ES-950935

PATIENT
  Age: 87 Year
  Sex: Female

DRUGS (3)
  1. VALSART?N + HIDROCLOROTIAZIDA [Suspect]
     Active Substance: HYDROCHLOROTHIAZIDE\VALSARTAN
     Indication: HYPERTENSION
     Dosage: 160/12,5MG CADA 24 HORAS
     Route: 048
     Dates: start: 20161205, end: 20170820
  2. SIMVASTATINA  ALTER 20 MG COMPRIMIDOS RECUBIERTOS CON PELICULA EFG , 2 [Concomitant]
     Indication: HYPERCHOLESTEROLAEMIA
     Dosage: 20MG CADA 24 HORAS
     Route: 048
     Dates: start: 20121130
  3. PARACETAMOL (12A) [Concomitant]
     Active Substance: ACETAMINOPHEN
     Indication: PAIN
     Dosage: 1000MG CADA 12 HORAS
     Route: 048
     Dates: start: 20150310

REACTIONS (3)
  - Disorientation [Recovered/Resolved]
  - Confusional state [Recovered/Resolved]
  - Hyponatraemia [Recovered/Resolved]

NARRATIVE: CASE EVENT DATE: 20170813
